FAERS Safety Report 22217753 (Version 2)
Quarter: 2023Q2

REPORT INFORMATION
  Report Type: Spontaneous
  Country: US (occurrence: US)
  Receive Date: 20230417
  Receipt Date: 20230619
  Transmission Date: 20230721
  Serious: No
  Sender: FDA-Public Use
  Company Number: US-SA-SAC20230414001599

PATIENT
  Sex: Female

DRUGS (1)
  1. DUPIXENT [Suspect]
     Active Substance: DUPILUMAB
     Dosage: 300 MG; FREQUENCY: OTHER
     Route: 058

REACTIONS (5)
  - Diarrhoea [Unknown]
  - Urinary tract infection [Recovered/Resolved]
  - Productive cough [Unknown]
  - Ocular hyperaemia [Recovering/Resolving]
  - Arthralgia [Unknown]
